FAERS Safety Report 10712487 (Version 2)
Quarter: 2015Q1

REPORT INFORMATION
  Report Type: Spontaneous
  Country: JP (occurrence: JP)
  Receive Date: 20150115
  Receipt Date: 20150224
  Transmission Date: 20150721
  Serious: Yes (Other)
  Sender: FDA-Public Use
  Company Number: JP-ROCHE-1521713

PATIENT
  Age: 95 Year
  Sex: Female

DRUGS (4)
  1. ETIZOLAM [Concomitant]
     Active Substance: ETIZOLAM
     Dosage: DOSAGE IS UNCERTAIN.
     Route: 065
  2. TAMIFLU [Suspect]
     Active Substance: OSELTAMIVIR PHOSPHATE
     Indication: ANTIVIRAL PROPHYLAXIS
     Route: 048
     Dates: start: 20150108, end: 20150108
  3. LANSOPRAZOLE. [Concomitant]
     Active Substance: LANSOPRAZOLE
     Dosage: DOSAGE IS UNCERTAIN.
     Route: 065
  4. AMLODIPINE [Concomitant]
     Active Substance: AMLODIPINE BESYLATE
     Dosage: DOSAGE IS UNCERTAIN.
     Route: 065

REACTIONS (4)
  - Hallucination, auditory [Unknown]
  - Delirium [Unknown]
  - Hallucination [Unknown]
  - Delusion [Unknown]

NARRATIVE: CASE EVENT DATE: 20150108
